FAERS Safety Report 4399413-6 (Version None)
Quarter: 2004Q3

REPORT INFORMATION
  Report Type: 
  Country: None (occurrence: None)
  Receive Date: 20040712
  Receipt Date: 20040708
  Transmission Date: 20050211
  Serious: Yes (Hospitalization)
  Sender: FDA-Public Use
  Company Number: 04-07-0973

PATIENT
  Age: 67 Year
  Sex: Male

DRUGS (2)
  1. CLOZAPINE - IVAX PHARMACEUTICALS, INC. TABLETS [Suspect]
     Indication: DEPRESSION
     Dosage: 75MG QD ORAL
     Route: 048
     Dates: start: 20030901
  2. CLOZAPINE - IVAX PHARMACEUTICALS, INC. TABLETS [Suspect]
     Indication: PARKINSON'S DISEASE
     Dosage: 75MG QD ORAL
     Route: 048
     Dates: start: 20030901

REACTIONS (3)
  - DELUSION [None]
  - PARANOIA [None]
  - URINARY TRACT INFECTION [None]
